FAERS Safety Report 16907008 (Version 1)
Quarter: 2019Q4

REPORT INFORMATION
  Report Type: Spontaneous
  Country: IT (occurrence: IT)
  Receive Date: 20191011
  Receipt Date: 20191011
  Transmission Date: 20200122
  Serious: Yes (Hospitalization)
  Sender: FDA-Public Use
  Company Number: IT-ASTRAZENECA-2019SF41701

PATIENT
  Age: 55 Year
  Sex: Female
  Weight: 78 kg

DRUGS (4)
  1. TAGRISSO [Suspect]
     Active Substance: OSIMERTINIB
     Indication: LUNG NEOPLASM MALIGNANT
     Route: 048
     Dates: start: 20180711, end: 20190731
  2. LANSOPRAZOLE. [Concomitant]
     Active Substance: LANSOPRAZOLE
     Route: 048
  3. EDOXABAN [Concomitant]
     Active Substance: EDOXABAN TOSYLATE
  4. NAPROXEN. [Concomitant]
     Active Substance: NAPROXEN
     Dosage: 50.0MG UNKNOWN

REACTIONS (4)
  - Hypersensitivity vasculitis [Unknown]
  - Purpura [Unknown]
  - Ulcer [Unknown]
  - Rash [Unknown]

NARRATIVE: CASE EVENT DATE: 20190704
